FAERS Safety Report 18446046 (Version 1)
Quarter: 2020Q4

REPORT INFORMATION
  Report Type: Spontaneous
  Country: US (occurrence: US)
  Receive Date: 20201029
  Receipt Date: 20201029
  Transmission Date: 20210114
  Serious: Yes (Hospitalization, Other)
  Sender: FDA-Public Use
  Company Number: None

PATIENT
  Age: 5 Year
  Sex: Male
  Weight: 18.14 kg

DRUGS (2)
  1. BICILLIN L-A [Suspect]
     Active Substance: PENICILLIN G BENZATHINE
     Indication: PHARYNGITIS STREPTOCOCCAL
     Route: 030
     Dates: start: 20201019
  2. BD ECLIPSE NEEDLE [Suspect]
     Active Substance: DEVICE

REACTIONS (5)
  - Vomiting [None]
  - Wound contamination [None]
  - Post procedural complication [None]
  - Wound [None]
  - Injection site abscess [None]
